FAERS Safety Report 17712032 (Version 1)
Quarter: 2020Q2

REPORT INFORMATION
  Report Type: Spontaneous
  Country: CA (occurrence: CA)
  Receive Date: 20200427
  Receipt Date: 20200427
  Transmission Date: 20200714
  Serious: Yes (Other)
  Sender: FDA-Public Use
  Company Number: CA-SAMSUNG BIOEPIS-SB-2020-13661

PATIENT
  Age: 52 Year
  Sex: Male

DRUGS (5)
  1. INFLIXIMAB [Suspect]
     Active Substance: INFLIXIMAB
     Indication: COLITIS ULCERATIVE
     Route: 042
  2. HYDROCORTISONE. [Concomitant]
     Active Substance: HYDROCORTISONE
     Indication: PREMEDICATION
     Route: 048
  3. DUTASTERIDE. [Concomitant]
     Active Substance: DUTASTERIDE
     Indication: PRODUCT USED FOR UNKNOWN INDICATION
     Dosage: UNKNOWN
     Route: 065
  4. AERIUS (DESLORATADINE) [Concomitant]
     Active Substance: DESLORATADINE
     Indication: PREMEDICATION
     Route: 048
  5. ACETAMINOPHEN. [Concomitant]
     Active Substance: ACETAMINOPHEN
     Indication: PREMEDICATION
     Route: 065

REACTIONS (13)
  - Abscess jaw [Not Recovered/Not Resolved]
  - Body temperature fluctuation [Not Recovered/Not Resolved]
  - Tooth infection [Not Recovered/Not Resolved]
  - Benign prostatic hyperplasia [Not Recovered/Not Resolved]
  - Pain in jaw [Not Recovered/Not Resolved]
  - Blood pressure fluctuation [Not Recovered/Not Resolved]
  - Inappropriate schedule of product administration [Not Recovered/Not Resolved]
  - Drug level below therapeutic [Not Recovered/Not Resolved]
  - Intentional product use issue [Not Recovered/Not Resolved]
  - Condition aggravated [Not Recovered/Not Resolved]
  - Drug specific antibody present [Not Recovered/Not Resolved]
  - Tooth disorder [Not Recovered/Not Resolved]
  - Off label use [Not Recovered/Not Resolved]
